FAERS Safety Report 6907702-3 (Version None)
Quarter: 2010Q3

REPORT INFORMATION
  Report Type: 
  Country: None (occurrence: None)
  Receive Date: 20100713
  Receipt Date: 20100511
  Transmission Date: 20110219
  Serious: Yes (Other)
  Sender: FDA-Public Use
  Company Number: 2010US001449

PATIENT
  Age: 68 Year
  Sex: Male

DRUGS (22)
  1. ADENOSCAN [Suspect]
     Indication: SCAN MYOCARDIAL PERFUSION
     Dosage: IV NOS
     Route: 042
     Dates: start: 20070709, end: 20070709
  2. ALPRAZOLAM [Concomitant]
  3. AMLODIPINE [Concomitant]
  4. ASCORBIC ACID [Concomitant]
  5. PLAVIX [Concomitant]
  6. MULTIVITAMIN [Concomitant]
  7. FUROSEMIDE [Concomitant]
  8. LOPID [Concomitant]
  9. HUMALOG [Concomitant]
  10. LANTUS [Concomitant]
  11. IMDUR (ISOSSORBIDE MONONITRATE) [Concomitant]
  12. LISINOPRIL [Concomitant]
  13. COZAAR [Concomitant]
  14. ZAROXOLYN [Concomitant]
  15. METOPROLOL TARTRATE [Concomitant]
  16. NIACIN [Concomitant]
  17. NYSTATIN [Concomitant]
  18. PAROXETINE HCL [Concomitant]
  19. ACTOS [Concomitant]
  20. POTASSIUM CHLORIDE [Concomitant]
  21. ZOCOR [Concomitant]
  22. TERAZOSIN HCL [Concomitant]

REACTIONS (2)
  - CARDIAC ARREST [None]
  - VENTRICULAR EXTRASYSTOLES [None]
